FAERS Safety Report 17028792 (Version 2)
Quarter: 2020Q2

REPORT INFORMATION
  Report Type: Spontaneous
  Country: US (occurrence: US)
  Receive Date: 20191114
  Receipt Date: 20200421
  Transmission Date: 20200713
  Serious: No
  Sender: FDA-Public Use
  Company Number: US-009507513-1910USA010738

PATIENT
  Age: 86 Year
  Sex: Female

DRUGS (8)
  1. CEFEPIME [Concomitant]
     Active Substance: CEFEPIME HYDROCHLORIDE
     Indication: ARTHRITIS BACTERIAL
     Dosage: UNK
  2. METRONIDAZOLE. [Concomitant]
     Active Substance: METRONIDAZOLE
     Indication: CLOSTRIDIAL INFECTION
  3. VANCOMYCIN [Concomitant]
     Active Substance: VANCOMYCIN
     Indication: ARTHRITIS BACTERIAL
     Dosage: UNK
  4. INVANZ [Suspect]
     Active Substance: ERTAPENEM SODIUM
     Indication: ARTHRITIS BACTERIAL
     Dosage: 1 G, EVERY 24 HOURS
     Route: 042
  5. CEFEPIME [Concomitant]
     Active Substance: CEFEPIME HYDROCHLORIDE
     Indication: CLOSTRIDIAL INFECTION
  6. INVANZ [Suspect]
     Active Substance: ERTAPENEM SODIUM
     Indication: CLOSTRIDIAL INFECTION
     Dosage: UNK
     Route: 042
  7. VANCOMYCIN [Concomitant]
     Active Substance: VANCOMYCIN
     Indication: CLOSTRIDIAL INFECTION
  8. METRONIDAZOLE. [Concomitant]
     Active Substance: METRONIDAZOLE
     Indication: ARTHRITIS BACTERIAL
     Dosage: UNK

REACTIONS (1)
  - Off label use [Unknown]
